FAERS Safety Report 9991836 (Version 2)
Quarter: 2014Q1

REPORT INFORMATION
  Report Type: Spontaneous
  Country: US (occurrence: US)
  Receive Date: 20140310
  Receipt Date: 20140310
  Transmission Date: 20141002
  Serious: Yes (Other)
  Sender: FDA-Public Use
  Company Number: US-ELI_LILLY_AND_COMPANY-US201201009522

PATIENT
  Age: 50 Year
  Sex: Female

DRUGS (7)
  1. CYMBALTA [Suspect]
     Indication: DEPRESSION
     Dosage: 30 MG, QD
     Route: 065
     Dates: start: 201112
  2. CYMBALTA [Suspect]
     Indication: AFFECTIVE DISORDER
     Dosage: 60 MG, QD
     Route: 065
     Dates: start: 201112, end: 201201
  3. CYMBALTA [Suspect]
     Indication: ANXIETY
  4. CYMBALTA [Suspect]
     Indication: ATTENTION DEFICIT/HYPERACTIVITY DISORDER
  5. ADDERALL [Concomitant]
  6. XANAX [Concomitant]
  7. CLONAZEPAM [Concomitant]

REACTIONS (9)
  - Stomatitis necrotising [Unknown]
  - Sinusitis [Unknown]
  - Osteonecrosis [Unknown]
  - Tooth loss [Unknown]
  - Mucosal infection [Unknown]
  - Sinus perforation [Unknown]
  - Cranial nerve disorder [Unknown]
  - Herpes virus infection [Unknown]
  - Oral pain [Unknown]
